FAERS Safety Report 20845051 (Version 1)
Quarter: 2022Q2

REPORT INFORMATION
  Report Type: Report from Study
  Country: US (occurrence: US)
  Receive Date: 20220518
  Receipt Date: 20220518
  Transmission Date: 20220721
  Serious: No
  Sender: FDA-Public Use
  Company Number: US-NOVARTISTESTPH-NVSC2022US114851

PATIENT
  Sex: Female

DRUGS (2)
  1. COSENTYX [Suspect]
     Active Substance: SECUKINUMAB
     Indication: Product used for unknown indication
     Dosage: 150 MG, QMO
     Route: 058
  2. COSENTYX [Suspect]
     Active Substance: SECUKINUMAB
     Dosage: UNK (2ND MAINTENANCE DOSE)
     Route: 065

REACTIONS (7)
  - Flatulence [Unknown]
  - Abdominal pain [Unknown]
  - Dyspepsia [Unknown]
  - Diarrhoea [Unknown]
  - Pollakiuria [Unknown]
  - Eating disorder [Unknown]
  - Arthritis [Unknown]
